FAERS Safety Report 7450818-6 (Version None)
Quarter: 2011Q2

REPORT INFORMATION
  Report Type: 
  Country: None (occurrence: None)
  Receive Date: 20110502
  Receipt Date: 20090323
  Transmission Date: 20111010
  Serious: Yes (Hospitalization, Other)
  Sender: FDA-Public Use
  Company Number: DE-GENENTECH-317636

PATIENT
  Age: 85 Year
  Sex: Male

DRUGS (1)
  1. LUCENTIS [Suspect]
     Indication: AGE-RELATED MACULAR DEGENERATION
     Route: 031

REACTIONS (6)
  - VISUAL ACUITY REDUCED [None]
  - ILEUS [None]
  - NEOPLASM MALIGNANT [None]
  - MALAISE [None]
  - IMPAIRED HEALING [None]
  - ASTHENIA [None]
